FAERS Safety Report 4590192-6 (Version None)
Quarter: 2005Q1

REPORT INFORMATION
  Report Type: 
  Country: None (occurrence: None)
  Receive Date: 20050217
  Receipt Date: 20050201
  Transmission Date: 20050727
  Serious: Yes (Hospitalization, Other)
  Sender: FDA-Public Use
  Company Number: 2004BI000880

PATIENT
  Age: 56 Year
  Sex: Female
  Weight: 73.9363 kg

DRUGS (25)
  1. AVONEX [Suspect]
     Indication: MULTIPLE SCLEROSIS
     Dosage: IM
     Route: 030
     Dates: start: 20010101
  2. AVONEX [Suspect]
     Indication: MULTIPLE SCLEROSIS
     Dosage: 30 UG; QW; IM
     Route: 030
  3. LORAZEPAM [Concomitant]
  4. NEURONTIN [Concomitant]
  5. ALDACTONE [Concomitant]
  6. DURAGESIC-100 [Concomitant]
  7. OXYCODONE HCL [Concomitant]
  8. METHADONE HCL [Concomitant]
  9. RHINOCORT [Concomitant]
  10. MEDICATION [Concomitant]
  11. PREDNISONE [Concomitant]
  12. FOLIC ACID [Concomitant]
  13. XANAX [Concomitant]
  14. IMDUR [Concomitant]
  15. ZANAFLEX [Concomitant]
  16. COMBIVENT [Concomitant]
  17. PURINETHOL [Concomitant]
  18. ATENOLOL [Concomitant]
  19. IMITREX [Concomitant]
  20. NEXIUM [Concomitant]
  21. ACTONEL [Concomitant]
  22. HUMALOG [Concomitant]
  23. ARICEPT [Concomitant]
  24. AMANTADINE [Concomitant]
  25. REMICADE [Concomitant]

REACTIONS (11)
  - ASTHMA [None]
  - BRONCHOPNEUMONIA [None]
  - CALCULUS BLADDER [None]
  - CROHN'S DISEASE [None]
  - HYPERTENSION [None]
  - NASOPHARYNGEAL DISORDER [None]
  - NASOPHARYNGITIS [None]
  - NEPHROLITHIASIS [None]
  - POLYP [None]
  - PRODUCTIVE COUGH [None]
  - RESPIRATORY FAILURE [None]
